FAERS Safety Report 9669031 (Version 1)
Quarter: 2013Q4

REPORT INFORMATION
  Report Type: Spontaneous
  Country: US (occurrence: US)
  Receive Date: 20131105
  Receipt Date: 20131105
  Transmission Date: 20140711
  Serious: No
  Sender: FDA-Public Use
  Company Number: US-PFIZER INC-2013310651

PATIENT
  Age: 18 Year
  Sex: Female
  Weight: 63.49 kg

DRUGS (3)
  1. ZITHROMAX [Suspect]
     Indication: SINUSITIS
     Dosage: UNK
  2. PLAN B ONE-STEP [Suspect]
     Indication: CONTRACEPTION
     Dosage: 1.5 MG, 1X/DAY
     Route: 048
     Dates: start: 20131009, end: 20131009
  3. PLAN B ONE-STEP [Suspect]
     Dosage: 1.5 MG, 1X/DAY
     Route: 048
     Dates: start: 20131012, end: 20131012

REACTIONS (3)
  - Menstrual disorder [Recovered/Resolved]
  - Vaginal discharge [Not Recovered/Not Resolved]
  - Abdominal pain lower [Not Recovered/Not Resolved]
